FAERS Safety Report 17514248 (Version 6)
Quarter: 2020Q3

REPORT INFORMATION
  Report Type: Spontaneous
  Country: DE (occurrence: DE)
  Receive Date: 20200306
  Receipt Date: 20200917
  Transmission Date: 20201102
  Serious: Yes (Hospitalization, Other)
  Sender: FDA-Public Use
  Company Number: DE-AUROBINDO-AUR-APL-2020-010855

PATIENT
  Age: 68 Year
  Sex: Male
  Weight: 119 kg

DRUGS (13)
  1. VALSARTAN. [Suspect]
     Active Substance: VALSARTAN
     Dosage: 160 MILLIGRAM, ONCE A DAY
     Route: 065
     Dates: start: 2012, end: 2018
  2. TAFLOTAN [Concomitant]
     Active Substance: TAFLUPROST
     Indication: PRODUCT USED FOR UNKNOWN INDICATION
     Dosage: UNK
     Route: 065
     Dates: start: 2015
  3. VALSARTAN. [Suspect]
     Active Substance: VALSARTAN
     Indication: HYPERTENSION
     Dosage: 160 MILLIGRAM, ONCE A DAY
     Route: 065
     Dates: start: 2009
  4. CANNABIDIOL [Concomitant]
     Active Substance: CANNABIDIOL
     Indication: PRODUCT USED FOR UNKNOWN INDICATION
     Dosage: UNK
     Route: 065
  5. PANTOPRAZOLE [Concomitant]
     Active Substance: PANTOPRAZOLE
     Indication: PRODUCT USED FOR UNKNOWN INDICATION
     Dosage: UNK, 40 OT
     Route: 065
  6. DIOVAN [Suspect]
     Active Substance: VALSARTAN
     Indication: HYPERTENSION
     Dosage: 160 MILLIGRAM
     Route: 065
  7. ACETYLSALICYLIC ACID [Concomitant]
     Active Substance: ASPIRIN
     Indication: PRODUCT USED FOR UNKNOWN INDICATION
     Dosage: 100 OT
     Route: 065
  8. ACETYLSALICYLIC ACID [Concomitant]
     Active Substance: ASPIRIN
     Dosage: UNK
     Route: 065
     Dates: start: 2013
  9. BISOPROLOL [Concomitant]
     Active Substance: BISOPROLOL
     Indication: PRODUCT USED FOR UNKNOWN INDICATION
     Dosage: 5 MILLIGRAM
     Route: 065
     Dates: start: 2013
  10. METFORMIN [Concomitant]
     Active Substance: METFORMIN HYDROCHLORIDE
     Indication: PRODUCT USED FOR UNKNOWN INDICATION
     Dosage: UNK
     Route: 065
  11. METHOTREXATE. [Concomitant]
     Active Substance: METHOTREXATE
     Indication: PRODUCT USED FOR UNKNOWN INDICATION
     Dosage: UNK
     Route: 065
     Dates: start: 2018, end: 2019
  12. FOLIC ACID. [Concomitant]
     Active Substance: FOLIC ACID
     Indication: PRODUCT USED FOR UNKNOWN INDICATION
     Dosage: UNK
     Route: 065
     Dates: start: 2018, end: 2019
  13. PREDNISOLON [Concomitant]
     Active Substance: PREDNISOLONE
     Indication: PRODUCT USED FOR UNKNOWN INDICATION
     Dosage: 5 MILLIGRAM
     Route: 065

REACTIONS (26)
  - Cardiac steatosis [Unknown]
  - Sleep apnoea syndrome [Unknown]
  - Chronic obstructive pulmonary disease [Unknown]
  - Glaucoma [Unknown]
  - Renal cyst [Unknown]
  - Goitre [Unknown]
  - Klippel-Feil syndrome [Unknown]
  - Rheumatoid arthritis [Unknown]
  - Hepatic steatosis [Unknown]
  - Arrhythmia [Unknown]
  - Atrial fibrillation [Unknown]
  - Metastases to lymph nodes [Unknown]
  - Tonsil cancer [Recovering/Resolving]
  - Dysphonia [Unknown]
  - Intervertebral disc degeneration [Unknown]
  - Emphysema [Unknown]
  - Wound abscess [Unknown]
  - General physical health deterioration [Unknown]
  - Arteriosclerosis coronary artery [Unknown]
  - Laryngeal oedema [Unknown]
  - Type 2 diabetes mellitus [Unknown]
  - Rheumatic disorder [Unknown]
  - Dyspnoea [Unknown]
  - Lymphadenopathy [Unknown]
  - Idiopathic pulmonary fibrosis [Unknown]
  - Aortic arteriosclerosis [Unknown]

NARRATIVE: CASE EVENT DATE: 20090816
